FAERS Safety Report 17932218 (Version 3)
Quarter: 2020Q3

REPORT INFORMATION
  Report Type: Spontaneous
  Country: US (occurrence: US)
  Receive Date: 20200623
  Receipt Date: 20200820
  Transmission Date: 20201103
  Serious: No
  Sender: FDA-Public Use
  Company Number: US-UNITED THERAPEUTICS-UNT-2020-009192

PATIENT
  Sex: Female
  Weight: 51.25 kg

DRUGS (5)
  1. REMODULIN [Suspect]
     Active Substance: TREPROSTINIL
     Dosage: 0.075 ?G/KG, CONTINUING
     Route: 058
  2. REMODULIN [Suspect]
     Active Substance: TREPROSTINIL
     Indication: PULMONARY ARTERIAL HYPERTENSION
     Dosage: UNK, CONTINUING
     Route: 058
     Dates: start: 20180720
  3. NIFEDIPINE. [Concomitant]
     Active Substance: NIFEDIPINE
     Indication: PRODUCT USED FOR UNKNOWN INDICATION
     Dosage: UNK
     Route: 065
  4. TADALAFIL. [Concomitant]
     Active Substance: TADALAFIL
     Indication: PRODUCT USED FOR UNKNOWN INDICATION
     Dosage: UNK
     Route: 065
  5. REMODULIN [Suspect]
     Active Substance: TREPROSTINIL
     Dosage: 0.074 ?G/KG, CONTINUING
     Route: 058

REACTIONS (11)
  - Dyspnoea [Unknown]
  - Weight increased [Unknown]
  - Infusion site pain [Unknown]
  - Exercise tolerance decreased [Unknown]
  - Pallor [Unknown]
  - Infusion site swelling [Unknown]
  - Asthenia [Unknown]
  - Dyspnoea exertional [Unknown]
  - Infusion site infection [Unknown]
  - Infusion site erythema [Unknown]
  - Confusional state [Unknown]

NARRATIVE: CASE EVENT DATE: 2020
